FAERS Safety Report 7555529-4 (Version None)
Quarter: 2011Q2

REPORT INFORMATION
  Report Type: 
  Country: None (occurrence: None)
  Receive Date: 20110617
  Receipt Date: 20051107
  Transmission Date: 20111010
  Serious: Yes (Hospitalization, Other)
  Sender: FDA-Public Use
  Company Number: PHHO2005BR17777

PATIENT
  Age: 56 Year
  Sex: Female
  Weight: 80 kg

DRUGS (1)
  1. FORMOTEROL FUMARATE [Suspect]
     Dosage: 12/400 UG, BID
     Dates: start: 20030801, end: 20050501

REACTIONS (3)
  - FALL [None]
  - NERVE INJURY [None]
  - BLOOD PRESSURE SYSTOLIC INCREASED [None]
